FAERS Safety Report 5659352-7 (Version None)
Quarter: 2008Q1

REPORT INFORMATION
  Report Type: 
  Country: None (occurrence: None)
  Receive Date: 20080307
  Receipt Date: 20080307
  Transmission Date: 20080703
  Serious: Yes (Other)
  Sender: FDA-Public Use
  Company Number: None

PATIENT
  Age: 33 Year
  Sex: Female
  Weight: 95.2554 kg

DRUGS (2)
  1. BOTOX [Suspect]
     Indication: MIGRAINE
     Dosage: 170 INJECTIONS GIVEN THAT DAY
     Dates: start: 20080221, end: 20080221
  2. BOTOX [Suspect]
     Indication: TORTICOLLIS
     Dosage: 170 INJECTIONS GIVEN THAT DAY
     Dates: start: 20080221, end: 20080221

REACTIONS (6)
  - ASTHENIA [None]
  - CHOKING [None]
  - DYSPHAGIA [None]
  - LOSS OF CONSCIOUSNESS [None]
  - MYALGIA [None]
  - VOMITING [None]
